FAERS Safety Report 4680478-9 (Version None)
Quarter: 2005Q2

REPORT INFORMATION
  Report Type: 
  Country: None (occurrence: None)
  Receive Date: 20050602
  Receipt Date: 20050310
  Transmission Date: 20051028
  Serious: Yes (Death, Hospitalization)
  Sender: FDA-Public Use
  Company Number: US-MERCK-0503USA02192

PATIENT
  Age: 65 Year
  Sex: Male
  Weight: 100 kg

DRUGS (15)
  1. VIOXX [Suspect]
     Indication: ARTHRITIS
     Route: 048
     Dates: start: 20020102, end: 20020514
  2. VIOXX [Suspect]
     Route: 048
     Dates: start: 20000728
  3. VIOXX [Suspect]
     Route: 048
     Dates: start: 20020102, end: 20020514
  4. VIOXX [Suspect]
     Route: 048
     Dates: start: 20000728
  5. METHOTREXATE [Concomitant]
     Route: 065
     Dates: start: 19950101, end: 20020501
  6. NAPROXEN [Concomitant]
     Route: 065
     Dates: start: 19940101, end: 20020501
  7. ULTRAM [Concomitant]
     Route: 065
  8. NEXIUM [Concomitant]
     Route: 065
     Dates: start: 20020101
  9. FOLIC ACID [Concomitant]
     Route: 065
  10. ACIPHEX [Concomitant]
     Route: 065
     Dates: start: 20020401
  11. CARDURA [Concomitant]
     Route: 065
     Dates: start: 19990101, end: 20020501
  12. ZANTAC [Concomitant]
     Route: 065
  13. TAGAMET [Concomitant]
     Route: 065
  14. AXID [Concomitant]
     Route: 065
  15. PEPCID [Concomitant]
     Route: 065

REACTIONS (15)
  - ARRHYTHMIA [None]
  - CARDIAC ARREST [None]
  - COLD SWEAT [None]
  - CORONARY ARTERY ATHEROSCLEROSIS [None]
  - DYSPEPSIA [None]
  - EMOTIONAL DISTRESS [None]
  - GASTRIC DISORDER [None]
  - HYPERHIDROSIS [None]
  - HYPOTENSION [None]
  - LOSS OF CONSCIOUSNESS [None]
  - MYOCARDIAL INFARCTION [None]
  - NAUSEA [None]
  - SYNCOPE [None]
  - VENTRICULAR FIBRILLATION [None]
  - VOMITING [None]
